FAERS Safety Report 22378360 (Version 1)
Quarter: 2023Q2

REPORT INFORMATION
  Report Type: Spontaneous
  Country: CA (occurrence: CA)
  Receive Date: 20230529
  Receipt Date: 20230529
  Transmission Date: 20230721
  Serious: Yes (Death)
  Sender: FDA-Public Use
  Company Number: CA-JNJFOC-20230557311

PATIENT
  Age: 63 Year
  Sex: Male

DRUGS (1)
  1. ACETAMINOPHEN [Suspect]
     Active Substance: ACETAMINOPHEN
     Indication: Product used for unknown indication
     Route: 065

REACTIONS (6)
  - Agonal respiration [Fatal]
  - Drug-disease interaction [Fatal]
  - Fatigue [Fatal]
  - General physical health deterioration [Fatal]
  - Loss of consciousness [Fatal]
  - Toxicity to various agents [Fatal]
